FAERS Safety Report 5146109-9 (Version None)
Quarter: 2006Q4

REPORT INFORMATION
  Report Type: 
  Country: None (occurrence: None)
  Receive Date: 20061108
  Receipt Date: 20060828
  Transmission Date: 20070319
  Serious: Yes (Other)
  Sender: FDA-Public Use
  Company Number: 2006AP04043

PATIENT
  Age: 55 Year
  Sex: Male

DRUGS (2)
  1. IRESSA [Suspect]
     Indication: LUNG NEOPLASM MALIGNANT
     Route: 048
     Dates: end: 20060101
  2. UNKNOWN CONCOMITANT MEDICATIONS [Concomitant]

REACTIONS (1)
  - DIPLEGIA [None]
